FAERS Safety Report 7831220-1 (Version None)
Quarter: 2011Q4

REPORT INFORMATION
  Report Type: 
  Country: None (occurrence: None)
  Receive Date: 20111021
  Receipt Date: 20110923
  Transmission Date: 20120403
  Serious: Yes (Hospitalization)
  Sender: FDA-Public Use
  Company Number: CA-ROCHE-1001897

PATIENT
  Sex: Male

DRUGS (13)
  1. IMMUNE GLOBULIN INTRAVENOUS (HUMAN) [Suspect]
     Indication: PEMPHIGOID
     Route: 042
     Dates: start: 20110521, end: 20110523
  2. DOCUSATE SODIUM [Concomitant]
     Dates: start: 20110525
  3. LACTULOSE [Concomitant]
     Dates: start: 20101111
  4. SENNOSIDES A + B [Concomitant]
     Dates: start: 20110525
  5. ACETAMINOPHEN [Concomitant]
     Dates: start: 20110525
  6. METHYLPHENIDATE [Concomitant]
     Dates: start: 20110525
  7. MEXILETINE HYDROCHLORIDE [Concomitant]
     Dates: start: 20110525
  8. LYRICA [Concomitant]
     Dates: start: 20110525
  9. VITACALCIN [Concomitant]
     Dates: start: 20110519
  10. MYCOPHENOLATE MOFETIL (CELLCEPT) [Suspect]
     Indication: PRODUCT USED FOR UNKNOWN INDICATION
     Route: 065
     Dates: end: 20110607
  11. PREDNISONE [Concomitant]
     Dates: start: 20110601
  12. METHADONE HCL [Concomitant]
     Dates: start: 20110525
  13. IMMUNE GLOBULIN INTRAVENOUS (HUMAN) [Suspect]
     Route: 042
     Dates: start: 20110601, end: 20110603

REACTIONS (3)
  - DEEP VEIN THROMBOSIS [None]
  - SKIN LESION [None]
  - HAEMOLYSIS [None]
